FAERS Safety Report 11614190 (Version 5)
Quarter: 2020Q1

REPORT INFORMATION
  Report Type: Report from Study
  Country: TW (occurrence: TW)
  Receive Date: 20151008
  Receipt Date: 20200117
  Transmission Date: 20200409
  Serious: Yes (Other)
  Sender: FDA-Public Use
  Company Number: PHHY2015TW121841

PATIENT
  Age: 61 Year
  Sex: Female
  Weight: 62 kg

DRUGS (21)
  1. RHIN [Concomitant]
     Indication: PRODUCT USED FOR UNKNOWN INDICATION
     Dosage: 1 DF, UNK
     Route: 048
     Dates: start: 20130603, end: 20130608
  2. CHLORPHENAMINE [Concomitant]
     Active Substance: CHLORPHENIRAMINE MALEATE
     Indication: PROPHYLAXIS
     Dosage: 5 MG, UNK
     Route: 042
     Dates: start: 20130804, end: 20130804
  3. IPRATROPIUM BROMIDE W/SALBUTAMOL [Concomitant]
     Active Substance: ALBUTEROL\IPRATROPIUM BROMIDE
     Indication: PRODUCT USED FOR UNKNOWN INDICATION
     Dosage: 1 DF, UNK
     Route: 055
     Dates: start: 20130808, end: 20130808
  4. PHYTONADIONE. [Concomitant]
     Active Substance: PHYTONADIONE
     Indication: GINGIVAL BLEEDING
     Dosage: 10 MG, UNK
     Route: 042
     Dates: start: 20130804, end: 20130806
  5. TASIGNA [Suspect]
     Active Substance: NILOTINIB
     Dosage: 300 OT
     Route: 048
     Dates: start: 20130703, end: 20130716
  6. TASIGNA [Suspect]
     Active Substance: NILOTINIB
     Dosage: 300 OT
     Route: 048
     Dates: start: 20130506, end: 20130512
  7. ACETYLCYSTEINE. [Concomitant]
     Active Substance: ACETYLCYSTEINE
     Indication: PRODUCT USED FOR UNKNOWN INDICATION
     Dosage: 600 MG, UNK
     Route: 048
     Dates: start: 20130520, end: 20130603
  8. MEPERIDINE [Concomitant]
     Active Substance: MEPERIDINE
     Indication: PROPHYLAXIS
     Dosage: 25 MG, QD
     Route: 065
     Dates: start: 20130804, end: 20130806
  9. TAZOCIN [Concomitant]
     Active Substance: PIPERACILLIN SODIUM\TAZOBACTAM SODIUM
     Indication: GASTROENTERITIS VIRAL
     Dosage: 2.5 G, UNK
     Route: 042
     Dates: start: 20130804, end: 20130807
  10. MICAFUNGIN SODIUM [Concomitant]
     Active Substance: MICAFUNGIN SODIUM
     Indication: PRODUCT USED FOR UNKNOWN INDICATION
     Dosage: 50 MG, QD
     Route: 065
     Dates: start: 20130820
  11. CLARITHROMYCIN. [Concomitant]
     Active Substance: CLARITHROMYCIN
     Indication: PRODUCT USED FOR UNKNOWN INDICATION
     Dosage: 500 MG, UNK
     Route: 048
     Dates: start: 20130810, end: 20130813
  12. COTRIMOXAZOLE [Concomitant]
     Active Substance: SULFAMETHOXAZOLE\TRIMETHOPRIM
     Indication: PRODUCT USED FOR UNKNOWN INDICATION
     Dosage: 10 ML, TID
     Route: 065
     Dates: start: 20130806, end: 20130810
  13. LEVOFLOXACIN. [Concomitant]
     Active Substance: LEVOFLOXACIN
     Indication: PRODUCT USED FOR UNKNOWN INDICATION
     Dosage: 500 MG, UNK
     Route: 042
     Dates: start: 20130807, end: 20130807
  14. IMIPENEM AND CILASTATIN [Concomitant]
     Active Substance: CILASTATIN SODIUM\IMIPENEM
     Indication: PRODUCT USED FOR UNKNOWN INDICATION
     Dosage: 500 MG, UNK
     Route: 042
     Dates: start: 20130816
  15. BROMHEXINE [Concomitant]
     Active Substance: BROMHEXINE
     Indication: PRODUCT USED FOR UNKNOWN INDICATION
     Dosage: 8 MG, QID
     Route: 065
     Dates: start: 20130810, end: 20130814
  16. FLUMETHOLON [Concomitant]
     Active Substance: FLUOROMETHOLONE
     Indication: VITREOUS HAEMORRHAGE
     Dosage: UNK
     Route: 047
     Dates: start: 20130408
  17. HIDROCORTISON [Concomitant]
     Active Substance: HYDROCORTISONE
     Indication: PROPHYLAXIS
     Dosage: 50 MG, QD
     Route: 065
     Dates: start: 20130804, end: 20130806
  18. TASIGNA [Suspect]
     Active Substance: NILOTINIB
     Indication: CHRONIC MYELOID LEUKAEMIA
     Dosage: 600 OT
     Route: 048
     Dates: start: 20130306, end: 20130401
  19. TASIGNA [Suspect]
     Active Substance: NILOTINIB
     Dosage: 600 OT
     Route: 048
     Dates: start: 20130513, end: 20130702
  20. CHLORPHENAMINE [Concomitant]
     Active Substance: CHLORPHENIRAMINE MALEATE
     Dosage: 5 MG, UNK
     Route: 065
     Dates: start: 20130804, end: 20130804
  21. GENTAMYCIN//GENTAMICIN [Concomitant]
     Active Substance: GENTAMICIN
     Indication: VITREOUS HAEMORRHAGE
     Dosage: UNK
     Route: 047
     Dates: start: 20130408

REACTIONS (2)
  - Hypokalaemia [Recovering/Resolving]
  - Pneumonia [Not Recovered/Not Resolved]

NARRATIVE: CASE EVENT DATE: 20130804
